FAERS Safety Report 23728590 (Version 2)
Quarter: 2024Q2

REPORT INFORMATION
  Report Type: Spontaneous
  Country: US (occurrence: US)
  Receive Date: 20240410
  Receipt Date: 20240502
  Transmission Date: 20240716
  Serious: No
  Sender: FDA-Public Use
  Company Number: US-ABBVIE-5713494

PATIENT
  Sex: Female

DRUGS (1)
  1. ARMOUR THYROID [Suspect]
     Active Substance: THYROID, PORCINE
     Indication: Hypothyroidism
     Dosage: FORM STRENGTH: 15 MG
     Route: 048

REACTIONS (5)
  - Thyroid disorder [Unknown]
  - Drug ineffective [Unknown]
  - Blood test abnormal [Unknown]
  - Product storage error [Unknown]
  - Poor quality product administered [Unknown]
